FAERS Safety Report 9968093 (Version 1)
Quarter: 2014Q1

REPORT INFORMATION
  Report Type: Report from Study
  Country: US (occurrence: US)
  Receive Date: 20140306
  Receipt Date: 20140306
  Transmission Date: 20141002
  Serious: No
  Sender: FDA-Public Use
  Company Number: US-ABBVIE-13P-163-1145627-00

PATIENT
  Age: 55 Year
  Sex: Female

DRUGS (9)
  1. HUMIRA [Suspect]
     Indication: PSORIASIS
     Dates: start: 20130509
  2. METFORMIN [Concomitant]
     Indication: DIABETES MELLITUS
  3. LISINOPRIL [Concomitant]
     Indication: HYPERTENSION
     Dosage: 20MG DAILY
  4. EFFEXOR [Concomitant]
     Indication: DEPRESSION
     Dosage: 150MG + 37.5MG DAILY
  5. LAMICTAL [Concomitant]
     Indication: BIPOLAR DISORDER
     Dosage: 300MG DAILY
  6. LAMICTAL [Concomitant]
     Indication: DEPRESSION
  7. ASPIRIN [Concomitant]
     Indication: PROPHYLAXIS
     Dosage: 325MG DAILY
  8. FISH OIL [Concomitant]
     Indication: PRODUCT USED FOR UNKNOWN INDICATION
  9. TRAZADONE [Concomitant]
     Indication: SLEEP DISORDER THERAPY
     Dosage: 300MG DAILY

REACTIONS (1)
  - Injection site pain [Recovered/Resolved]
